FAERS Safety Report 15676844 (Version 1)
Quarter: 2018Q4

REPORT INFORMATION
  Report Type: Spontaneous
  Country: US (occurrence: US)
  Receive Date: 20181130
  Receipt Date: 20181130
  Transmission Date: 20190205
  Serious: No
  Sender: FDA-Public Use
  Company Number: US-PFIZER INC-2018486072

PATIENT
  Age: 71 Year
  Sex: Female

DRUGS (7)
  1. CELEBREX [Suspect]
     Active Substance: CELECOXIB
     Dosage: UNK
  2. OXYCODONE [Suspect]
     Active Substance: OXYCODONE
     Dosage: UNK
  3. PRAVASTATIN. [Suspect]
     Active Substance: PRAVASTATIN
     Dosage: UNK
  4. CLARITIN [Suspect]
     Active Substance: LORATADINE
     Dosage: UNK
  5. CODEINE [Suspect]
     Active Substance: CODEINE
     Dosage: UNK
  6. AMPICILLIN SODIUM. [Suspect]
     Active Substance: AMPICILLIN SODIUM
     Dosage: UNK
  7. ERYTHROMYCIN. [Suspect]
     Active Substance: ERYTHROMYCIN
     Dosage: UNK

REACTIONS (1)
  - Drug hypersensitivity [Unknown]
